FAERS Safety Report 6389867-8 (Version None)
Quarter: 2009Q4

REPORT INFORMATION
  Report Type: 
  Country: None (occurrence: None)
  Receive Date: 20091006
  Receipt Date: 20081121
  Transmission Date: 20100525
  Serious: No
  Sender: FDA-Public Use
  Company Number: US-BRISTOL-MYERS SQUIBB COMPANY-14420137

PATIENT
  Age: 77 Year
  Sex: Female

DRUGS (6)
  1. AVAPRO [Suspect]
     Indication: HYPERTENSION
     Dosage: TAKEN 150MG/DAY AND THEN INCREASED TO 300MG/D FROM 06AUG08
  2. ASPIRIN [Concomitant]
  3. VERAPAMIL [Concomitant]
  4. LEXAPRO [Concomitant]
     Dosage: 1 DOSAGEFORM = 10 (UNITS NOT MENTIONED)
  5. VALPROIC ACID [Concomitant]
     Dosage: 1 DOSAGEFORM = 250 (UNITS NOT MENTIONED)
  6. CENTRUM SILVER [Concomitant]

REACTIONS (2)
  - LIP BLISTER [None]
  - LIP EXFOLIATION [None]
